FAERS Safety Report 17580350 (Version 1)
Quarter: 2020Q1

REPORT INFORMATION
  Report Type: Spontaneous
  Country: FR (occurrence: FR)
  Receive Date: 20200325
  Receipt Date: 20200325
  Transmission Date: 20200409
  Serious: Yes (Hospitalization)
  Sender: FDA-Public Use
  Company Number: FR-JNJFOC-20200327100

PATIENT
  Age: 70 Year
  Sex: Female
  Weight: 71 kg

DRUGS (1)
  1. RIVAROXABAN [Suspect]
     Active Substance: RIVAROXABAN
     Indication: ATRIAL FIBRILLATION
     Dosage: 15 MG
     Route: 048
     Dates: start: 20191119, end: 20200103

REACTIONS (2)
  - Drug ineffective [Recovered/Resolved with Sequelae]
  - Arterial thrombosis [Recovered/Resolved with Sequelae]

NARRATIVE: CASE EVENT DATE: 20200103
